FAERS Safety Report 9376091 (Version 1)
Quarter: 2013Q2

REPORT INFORMATION
  Report Type: Spontaneous
  Country: BR (occurrence: BR)
  Receive Date: 20130630
  Receipt Date: 20130630
  Transmission Date: 20140414
  Serious: Yes (Death, Hospitalization)
  Sender: FDA-Public Use
  Company Number: BR-SANOFI-AVENTIS-2013SA062653

PATIENT
  Age: 82 Year
  Sex: Female
  Weight: 64 kg

DRUGS (4)
  1. CLEXANE [Suspect]
     Indication: PRODUCT USED FOR UNKNOWN INDICATION
     Dosage: DOSE: 1 SYRINGE DAILY?ROUTE: INJECTION ON BUTTOCK
     Dates: start: 20130605, end: 20130606
  2. LANTUS [Concomitant]
     Dates: end: 20130606
  3. INSULIN [Concomitant]
     Indication: DIABETES MELLITUS
     Dosage: FROM: ABOUT 7 YEARS AGO
     Dates: end: 20130606
  4. SELOZOK [Concomitant]
     Dosage: FROM: ABOUT THREE YEARS AGO?DOSE: UNSPECIFIED DOSE IN THE MORNING
     Route: 048

REACTIONS (3)
  - Pulmonary embolism [Fatal]
  - Malaise [Fatal]
  - Drug administered at inappropriate site [Unknown]
